FAERS Safety Report 9118353 (Version 1)
Quarter: 2013Q1

REPORT INFORMATION
  Report Type: Spontaneous
  Country: US (occurrence: None)
  Receive Date: 20130221
  Receipt Date: 20130221
  Transmission Date: 20140127
  Serious: Yes (Death, Hospitalization)
  Sender: FDA-Public Use
  Company Number: None

PATIENT
  Sex: Female
  Weight: 11.5 kg

DRUGS (8)
  1. CYTARABINE [Suspect]
     Route: 039
  2. DAUNORUBICIN [Suspect]
     Dosage: 2 DOSES ADMINISTERED
  3. DEXAMETHASONE [Suspect]
     Dosage: 26 DOSES ADMINISTERED
  4. METHOTREXATE [Suspect]
     Dosage: DAY 8 INDUCTION DOSE
  5. ONCASPAR [Suspect]
     Dosage: 1 DOSE ADMINISTERED
     Dates: start: 20130207
  6. VINCRISTINE SULFATE [Suspect]
     Dosage: 2 DOSES ADMINISTERED
  7. GENTAMICIN [Concomitant]
  8. ZOSYN [Concomitant]

REACTIONS (6)
  - Cardiac arrest [None]
  - Convulsion [None]
  - Apnoea [None]
  - Ventricular tachycardia [None]
  - Disseminated intravascular coagulation [None]
  - Brain herniation [None]
